FAERS Safety Report 9018240 (Version 1)
Quarter: 2013Q1

REPORT INFORMATION
  Report Type: Spontaneous
  Country: US (occurrence: None)
  Receive Date: 20130111
  Receipt Date: 20130111
  Transmission Date: 20140127
  Serious: No
  Sender: FDA-Public Use
  Company Number: None

PATIENT
  Sex: Female

DRUGS (1)
  1. AFINITOR [Suspect]
     Dosage: 10MG DAILY ORALLY
     Route: 048
     Dates: start: 20121024, end: 20121215

REACTIONS (3)
  - Nausea [None]
  - Skin ulcer [None]
  - Epistaxis [None]
